FAERS Safety Report 17201678 (Version 1)
Quarter: 2019Q4

REPORT INFORMATION
  Report Type: Spontaneous
  Country: US (occurrence: US)
  Receive Date: 20191203
  Receipt Date: 20191203
  Transmission Date: 20200122
  Serious: Yes (Death)
  Sender: FDA-Public Use
  Company Number: None

PATIENT
  Age: 76 Year
  Sex: Female
  Weight: 46.72 kg

DRUGS (1)
  1. IBRUTINIB [Suspect]
     Active Substance: IBRUTINIB

REACTIONS (17)
  - Neurological symptom [None]
  - Hyperacusis [None]
  - Seizure [None]
  - Hyponatraemia [None]
  - Brain injury [None]
  - Viral infection [None]
  - Asthenia [None]
  - Parosmia [None]
  - Inappropriate antidiuretic hormone secretion [None]
  - Headache [None]
  - Somnolence [None]
  - Unevaluable event [None]
  - Psychotic disorder [None]
  - Sudden death [None]
  - Fatigue [None]
  - Musculoskeletal pain [None]
  - Vertigo [None]

NARRATIVE: CASE EVENT DATE: 20191111
